FAERS Safety Report 6457770-0 (Version None)
Quarter: 2009Q4

REPORT INFORMATION
  Report Type: 
  Country: None (occurrence: None)
  Receive Date: 20091125
  Receipt Date: 20091123
  Transmission Date: 20100525
  Serious: Yes (Death, Disabling, Other)
  Sender: FDA-Public Use
  Company Number: HQWYE315317AUG04

PATIENT
  Sex: Female

DRUGS (2)
  1. PREMARIN [Suspect]
  2. PROVERA [Suspect]

REACTIONS (10)
  - BREAST CANCER IN SITU [None]
  - BREAST CANCER METASTATIC [None]
  - COLONIC POLYP [None]
  - INTESTINAL ADENOCARCINOMA [None]
  - LUNG ADENOCARCINOMA [None]
  - MAJOR DEPRESSION [None]
  - METASTATIC NEOPLASM [None]
  - OESTROGEN RECEPTOR ASSAY POSITIVE [None]
  - PROGESTERONE RECEPTOR ASSAY POSITIVE [None]
  - PULMONARY MASS [None]
